FAERS Safety Report 6163944-9 (Version None)
Quarter: 2009Q2

REPORT INFORMATION
  Report Type: 
  Country: None (occurrence: None)
  Receive Date: 20090422
  Receipt Date: 20090415
  Transmission Date: 20091009
  Serious: Yes (Other)
  Sender: FDA-Public Use
  Company Number: DE-ABBOTT-09P-062-0566920-00

PATIENT
  Sex: Male
  Weight: 95 kg

DRUGS (4)
  1. CIPRALEX FILM-COATED TABLETS [Suspect]
     Indication: DRUG USE FOR UNKNOWN INDICATION
     Dosage: OVERDOSE: 160MG (10MG, 16 IN 1 DAY)
     Route: 048
     Dates: start: 20090331, end: 20090331
  2. MIRTAZAPINE [Suspect]
     Indication: DRUG USE FOR UNKNOWN INDICATION
     Dosage: OVERDOSE: 240MG (30 MG, 8 IN 1 DAY)
     Route: 048
     Dates: start: 20090331, end: 20090331
  3. TAVOR [Suspect]
     Indication: DRUG USE FOR UNKNOWN INDICATION
     Dosage: OVERDOSE: 20 MG (0.5 MG, 40 IN 1 DAY)
     Route: 048
     Dates: start: 20090331, end: 20090331
  4. ALCOHOL [Suspect]
     Indication: DRUG USE FOR UNKNOWN INDICATION
     Dosage: OVERDOSE: UNKNOWN AMOUNT (1.3 PER MILLE)
     Route: 048
     Dates: start: 20090331, end: 20090331

REACTIONS (5)
  - AGGRESSION [None]
  - MULTIPLE DRUG OVERDOSE INTENTIONAL [None]
  - SOPOR [None]
  - SUICIDE ATTEMPT [None]
  - TACHYCARDIA [None]
